FAERS Safety Report 6393369-2 (Version None)
Quarter: 2009Q4

REPORT INFORMATION
  Report Type: 
  Country: None (occurrence: None)
  Receive Date: 20091008
  Receipt Date: 20090923
  Transmission Date: 20100525
  Serious: Yes (Other)
  Sender: FDA-Public Use
  Company Number: BR-PFIZER INC-2009202206

PATIENT
  Age: 33 Year

DRUGS (1)
  1. SILDENAFIL CITRATE [Suspect]
     Dosage: UNK
     Dates: start: 20050101

REACTIONS (2)
  - PAIN [None]
  - VISUAL ACUITY REDUCED [None]
